FAERS Safety Report 6314476-6 (Version None)
Quarter: 2009Q3

REPORT INFORMATION
  Report Type: 
  Country: None (occurrence: None)
  Receive Date: 20090817
  Receipt Date: 20090805
  Transmission Date: 20100115
  Serious: Yes (Death)
  Sender: FDA-Public Use
  Company Number: 2009002383

PATIENT
  Age: 68 Year
  Sex: Male

DRUGS (3)
  1. TARCEVA [Suspect]
     Indication: LUNG ADENOCARCINOMA
     Dosage: 150 MG, ORAL
     Route: 048
     Dates: start: 20070201, end: 20090317
  2. TARCEVA [Suspect]
     Indication: LUNG ADENOCARCINOMA
     Dosage: 150 MG, ORAL
     Route: 048
     Dates: start: 20090327, end: 20090329
  3. CARBOPLATIN [Concomitant]

REACTIONS (3)
  - EPISTAXIS [None]
  - RENAL FAILURE [None]
  - THROMBOTIC THROMBOCYTOPENIC PURPURA [None]
